FAERS Safety Report 21948752 (Version 1)
Quarter: 2023Q1

REPORT INFORMATION
  Report Type: Spontaneous
  Country: TR (occurrence: TR)
  Receive Date: 20230203
  Receipt Date: 20230203
  Transmission Date: 20230418
  Serious: Yes (Death, Hospitalization, Other)
  Sender: FDA-Public Use
  Company Number: TR-STERISCIENCE B.V.-2023-ST-000405

PATIENT
  Age: 65 Year
  Sex: Male

DRUGS (4)
  1. GANCICLOVIR SODIUM [Suspect]
     Active Substance: GANCICLOVIR SODIUM
     Indication: Cytomegalovirus infection
     Dosage: 5 MILLIGRAM/KILOGRAM, QD
     Route: 042
  2. GANCICLOVIR SODIUM [Suspect]
     Active Substance: GANCICLOVIR SODIUM
     Indication: Pneumonia viral
  3. CEFTAZIDIME [Suspect]
     Active Substance: CEFTAZIDIME
     Indication: Pseudomonas infection
     Dosage: 1 GRAM, TID
     Route: 065
  4. AMIKACIN [Suspect]
     Active Substance: AMIKACIN
     Indication: Pseudomonas infection
     Dosage: 500 MILLIGRAM, QD
     Route: 042

REACTIONS (1)
  - Drug ineffective [Fatal]
